FAERS Safety Report 14290550 (Version 3)
Quarter: 2018Q1

REPORT INFORMATION
  Report Type: Spontaneous
  Country: JP (occurrence: JP)
  Receive Date: 20171215
  Receipt Date: 20180121
  Transmission Date: 20180509
  Serious: Yes (Hospitalization)
  Sender: FDA-Public Use
  Company Number: PHJP2017JP029554

PATIENT
  Age: 70 Year
  Sex: Male

DRUGS (6)
  1. REVOLADE TAB [Suspect]
     Active Substance: ELTROMBOPAG
     Indication: APLASTIC ANAEMIA
     Dosage: 25 MG, QD
     Route: 048
     Dates: start: 20170901, end: 201709
  2. EXJADE [Concomitant]
     Active Substance: DEFERASIROX
     Indication: PRODUCT USED FOR UNKNOWN INDICATION
     Dosage: UNK
     Route: 065
  3. REVOLADE TAB [Suspect]
     Active Substance: ELTROMBOPAG
     Dosage: 100 MG, QD
     Route: 048
     Dates: start: 201709, end: 20171210
  4. CICLOSPORIN [Suspect]
     Active Substance: CYCLOSPORINE
     Indication: PRODUCT USED FOR UNKNOWN INDICATION
     Dosage: UNK
     Route: 065
  5. PRIMOBOLAN-DEPOT [Concomitant]
     Active Substance: METHENOLONE ENANTHATE
     Indication: PRODUCT USED FOR UNKNOWN INDICATION
     Dosage: UNK
     Route: 065
  6. REVOLADE TAB [Suspect]
     Active Substance: ELTROMBOPAG
     Dosage: 25 MG, QD
     Route: 048
     Dates: start: 201709, end: 201709

REACTIONS (8)
  - Abdominal pain [Recovered/Resolved]
  - Granulocytopenia [Unknown]
  - Acute myeloid leukaemia [Not Recovered/Not Resolved]
  - Thrombocytopenia [Unknown]
  - Fatigue [Unknown]
  - Haemorrhage [Unknown]
  - Blast cell count increased [Unknown]
  - Internal haemorrhage [Unknown]

NARRATIVE: CASE EVENT DATE: 201709
